FAERS Safety Report 4372946-4 (Version None)
Quarter: 2004Q2

REPORT INFORMATION
  Report Type: 
  Country: None (occurrence: None)
  Receive Date: 20040603
  Receipt Date: 20040526
  Transmission Date: 20050107
  Serious: No
  Sender: FDA-Public Use
  Company Number: 2004212738US

PATIENT
  Age: 74 Year
  Sex: Female
  Weight: 54.4 kg

DRUGS (3)
  1. CELEBREX [Suspect]
     Indication: OSTEOARTHRITIS
     Dosage: 200 MG, QD
     Dates: start: 20020101
  2. CRESTOR [Concomitant]
  3. ANTI-CHOLESTEROL DRUG [Concomitant]

REACTIONS (1)
  - NO ADVERSE DRUG EFFECT [None]
